FAERS Safety Report 8789228 (Version 1)
Quarter: 2012Q4

REPORT INFORMATION
  Report Type: Spontaneous
  Country: US (occurrence: None)
  Receive Date: 20120910
  Receipt Date: 20120910
  Transmission Date: 20130627
  Serious: Yes (Life-Threatening)
  Sender: FDA-Public Use
  Company Number: None

PATIENT
  Age: 52 Year
  Sex: Female
  Weight: 63.5 kg

DRUGS (1)
  1. DIETHYLSTILBESTROL [Suspect]

REACTIONS (6)
  - Pyelonephritis [None]
  - Renal cell carcinoma [None]
  - Ovarian cyst [None]
  - Uterine cyst [None]
  - Maternal exposure before pregnancy [None]
  - Pain [None]
